FAERS Safety Report 5210927-9 (Version None)
Quarter: 2007Q1

REPORT INFORMATION
  Report Type: 
  Country: None (occurrence: None)
  Receive Date: 20070117
  Receipt Date: 20070108
  Transmission Date: 20070707
  Serious: Yes (Other)
  Sender: FDA-Public Use
  Company Number: US-PFIZER INC-2007002978

PATIENT
  Sex: Male
  Weight: 99.8 kg

DRUGS (4)
  1. VIAGRA [Suspect]
     Indication: ERECTILE DYSFUNCTION
     Route: 048
  2. ARGININE HYDROCHLORIDE [Interacting]
     Indication: ERECTILE DYSFUNCTION
  3. METOPROLOL SUCCINATE [Interacting]
     Indication: HYPERTENSION
     Route: 048
  4. LISINOPRIL [Concomitant]
     Route: 048

REACTIONS (4)
  - DRUG INTERACTION [None]
  - FEELING ABNORMAL [None]
  - HEART RATE DECREASED [None]
  - HYPOTENSION [None]
